FAERS Safety Report 8542959-7 (Version None)
Quarter: 2012Q3

REPORT INFORMATION
  Report Type: 
  Country: None (occurrence: None)
  Receive Date: 20120727
  Receipt Date: 20120724
  Transmission Date: 20120928
  Serious: Yes (Hospitalization)
  Sender: FDA-Public Use
  Company Number: US-PFIZER INC-2012179455

PATIENT
  Sex: Female
  Weight: 77.1 kg

DRUGS (6)
  1. GEODON [Suspect]
     Indication: BIPOLAR DISORDER
     Dosage: 80 MG, 1X/DAY
     Route: 048
  2. LORAZEPAM [Concomitant]
     Indication: MENTAL DISORDER
     Dosage: UNK
  3. RISPERDAL [Concomitant]
     Dosage: UNK
  4. PROTONIX [Concomitant]
     Indication: GASTROOESOPHAGEAL REFLUX DISEASE
     Dosage: UNK
  5. PROZAC [Concomitant]
     Dosage: UNK
  6. LITHIUM [Concomitant]
     Dosage: UNK

REACTIONS (1)
  - BIPOLAR DISORDER [None]
